FAERS Safety Report 9196380 (Version 1)
Quarter: 2013Q1

REPORT INFORMATION
  Report Type: Spontaneous
  Country: US (occurrence: None)
  Receive Date: 20120703
  Receipt Date: 20120703
  Transmission Date: 20140127
  Serious: No
  Sender: FDA-Public Use
  Company Number: PHEH2012US008921

PATIENT
  Age: 39 Year
  Sex: Male
  Weight: 105.7 kg

DRUGS (2)
  1. GILENYA [Suspect]
     Indication: MULTIPLE SCLEROSIS
     Route: 048
     Dates: start: 20110424
  2. BACLOFEN (BACLOFEN) 20MG [Concomitant]

REACTIONS (6)
  - Pain [None]
  - Fatigue [None]
  - Pain in extremity [None]
  - Paraesthesia [None]
  - Back pain [None]
  - Headache [None]
